FAERS Safety Report 13472379 (Version 1)
Quarter: 2017Q2

REPORT INFORMATION
  Report Type: Spontaneous
  Country: US (occurrence: US)
  Receive Date: 20170422
  Receipt Date: 20170422
  Transmission Date: 20170830
  Serious: Yes (Death)
  Sender: FDA-Public Use
  Company Number: None

PATIENT
  Age: 60 Year
  Sex: Female
  Weight: 90 kg

DRUGS (10)
  1. BLEOMYCIN [Suspect]
     Active Substance: BLEOMYCIN SULFATE
     Indication: HODGKIN^S DISEASE
     Dosage: ?          OTHER FREQUENCY:DAY 1 AND 15/CYCLE;?
     Route: 042
     Dates: start: 20160406, end: 20160909
  2. DACARBAZINE. [Concomitant]
     Active Substance: DACARBAZINE
  3. VINBLASTINE [Concomitant]
     Active Substance: VINBLASTINE
  4. DOXORUBICIN [Concomitant]
     Active Substance: DOXORUBICIN
  5. SOLU-MEDROL [Concomitant]
     Active Substance: METHYLPREDNISOLONE SODIUM SUCCINATE
  6. CEFEPIME [Concomitant]
     Active Substance: CEFEPIME HYDROCHLORIDE
  7. AZITHROMYCIN ANHYDROUS. [Concomitant]
     Active Substance: AZITHROMYCIN ANHYDROUS
  8. FOSAPREPITANT [Concomitant]
     Active Substance: FOSAPREPITANT
  9. NEULASTA [Concomitant]
     Active Substance: PEGFILGRASTIM
  10. VANCOMYCIN [Concomitant]
     Active Substance: VANCOMYCIN

REACTIONS (7)
  - Alveolitis allergic [None]
  - Cough [None]
  - Computerised tomogram thorax abnormal [None]
  - Dyspnoea [None]
  - Pulmonary toxicity [None]
  - Lung disorder [None]
  - Pneumonia [None]

NARRATIVE: CASE EVENT DATE: 20160914
